FAERS Safety Report 9924269 (Version 4)
Quarter: 2014Q2

REPORT INFORMATION
  Report Type: Report from Study
  Country: AU (occurrence: AU)
  Receive Date: 20140226
  Receipt Date: 20140414
  Transmission Date: 20141212
  Serious: Yes (Other)
  Sender: FDA-Public Use
  Company Number: AU-MERCK-1312AUS000293

PATIENT
  Age: 65 Year
  Sex: 0

DRUGS (3)
  1. RIBAVIRIN [Suspect]
     Indication: CHRONIC HEPATITIS C
     Dosage: UNK
     Route: 048
     Dates: start: 2013
  2. BOCEPREVIR [Interacting]
     Indication: CHRONIC HEPATITIS C
     Dosage: UNK
     Route: 048
     Dates: start: 2013
  3. PEGINTERFERON ALFA-2A [Interacting]
     Indication: CHRONIC HEPATITIS C
     Dosage: 180 MICROGRAM, UNK
     Dates: start: 2013

REACTIONS (3)
  - Renal failure acute [Recovering/Resolving]
  - Hepatic cirrhosis [Unknown]
  - Nephropathy toxic [Unknown]
